FAERS Safety Report 8681468 (Version 2)
Quarter: 2012Q4

REPORT INFORMATION
  Report Type: 
  Country: US (occurrence: US)
  Receive Date: 20120725
  Receipt Date: 20120914
  Transmission Date: 20130627
  Serious: Yes (Other)
  Sender: FDA-Public Use
  Company Number: US-JNJFOC-20120710025

PATIENT
  Age: 15 None
  Sex: Female
  Weight: 48.1 kg

DRUGS (1)
  1. REMICADE [Suspect]
     Indication: CROHN^S DISEASE
     Route: 042
     Dates: start: 20110924, end: 20120310

REACTIONS (2)
  - Spondyloarthropathy [Unknown]
  - Psoriasis [Recovering/Resolving]
